FAERS Safety Report 20351493 (Version 1)
Quarter: 2022Q1

REPORT INFORMATION
  Report Type: Spontaneous
  Country: US (occurrence: None)
  Receive Date: 20220118
  Receipt Date: 20220118
  Transmission Date: 20220423
  Serious: Yes (Death)
  Sender: FDA-Public Use
  Company Number: None

PATIENT
  Age: 34 Year
  Sex: Male

DRUGS (20)
  1. ZENPEP [Suspect]
     Active Substance: PANCRELIPASE AMYLASE\PANCRELIPASE LIPASE\PANCRELIPASE PROTEASE
     Indication: Cystic fibrosis
     Dosage: FREQUENCY : DAILY;?
     Route: 048
  2. ACITRETIN [Concomitant]
     Active Substance: ACITRETIN
     Dates: start: 20210607, end: 20220118
  3. ADVAIR DISKUS [Concomitant]
     Active Substance: FLUTICASONE PROPIONATE\SALMETEROL XINAFOATE
     Dates: start: 20191027, end: 20220118
  4. AMLODIPINE [Concomitant]
     Active Substance: AMLODIPINE BESYLATE
     Dates: start: 20200603, end: 20220118
  5. AZITHROMYCIN [Concomitant]
     Active Substance: AZITHROMYCIN
     Dates: start: 20200217, end: 20220118
  6. BUDESONIDE [Concomitant]
     Active Substance: BUDESONIDE
     Dates: start: 20200603, end: 20220118
  7. ciprofioxacin [Concomitant]
     Dates: start: 20210607, end: 20220118
  8. FENOFIBRATE [Concomitant]
     Active Substance: FENOFIBRATE
     Dates: end: 20220118
  9. ITRACONAZOLE [Concomitant]
     Active Substance: ITRACONAZOLE
     Dates: start: 20201201, end: 20220118
  10. Iisinopn^l [Concomitant]
     Dates: start: 20211202
  11. magneisum oxide [Concomitant]
     Dates: end: 20220118
  12. METOPROLOL TARTRATE [Concomitant]
     Active Substance: METOPROLOL TARTRATE
     Dates: start: 20190619, end: 20220118
  13. MUPIROCIN [Concomitant]
     Active Substance: MUPIROCIN
     Dates: start: 20210607, end: 20220118
  14. OMEPRAZOLE [Concomitant]
     Active Substance: OMEPRAZOLE
     Dates: end: 20220118
  15. OXYCODONE [Concomitant]
     Active Substance: OXYCODONE
     Dates: start: 20210519, end: 20220118
  16. POSACONAZOLE [Concomitant]
     Active Substance: POSACONAZOLE
     Dates: start: 20200603, end: 20220118
  17. PREDNISONE [Concomitant]
     Active Substance: PREDNISONE
     Dates: start: 20200117, end: 20220118
  18. ROSUVASTATIN [Concomitant]
     Active Substance: ROSUVASTATIN
     Dates: start: 20200803, end: 20220118
  19. urosdiol [Concomitant]
     Dates: start: 20191116, end: 20220118
  20. VITAMIN D3 [Concomitant]
     Active Substance: CHOLECALCIFEROL
     Dates: end: 20220118

REACTIONS (1)
  - Death [None]

NARRATIVE: CASE EVENT DATE: 20220117
